FAERS Safety Report 4367370-4 (Version None)
Quarter: 2004Q2

REPORT INFORMATION
  Report Type: 
  Country: None (occurrence: None)
  Receive Date: 20040528
  Receipt Date: 20040519
  Transmission Date: 20050107
  Serious: Yes (Death, Hospitalization)
  Sender: FDA-Public Use
  Company Number: A-CH2004-05676

PATIENT
  Age: 62 Year
  Sex: Female

DRUGS (12)
  1. TRACLEER [Suspect]
     Indication: PULMONARY HYPERTENSION
     Dosage: 62.5 MG, BID, ORAL
     Route: 048
     Dates: start: 20040302, end: 20040401
  2. MARCUMAR [Concomitant]
  3. SPIRONOLACTONE [Concomitant]
  4. FUROSEMIDE [Concomitant]
  5. PREDNISONE [Concomitant]
  6. CALCIUM [Concomitant]
  7. OMEPRAZOLE [Concomitant]
  8. FLUTIDE DISKUS (FLUTICASONE PROPIONATE) [Concomitant]
  9. GLUCOBAY [Concomitant]
  10. DILZEM ^ELAN^ (DILTIAZEM HYDROCHLORIDE) [Concomitant]
  11. INSULIN [Concomitant]
  12. SEREVENT [Concomitant]

REACTIONS (7)
  - CONDITION AGGRAVATED [None]
  - COR PULMONALE CHRONIC [None]
  - DYSPNOEA [None]
  - LUNG INFECTION [None]
  - NAUSEA [None]
  - RIGHT VENTRICULAR FAILURE [None]
  - VOMITING [None]
